FAERS Safety Report 16887689 (Version 2)
Quarter: 2020Q1

REPORT INFORMATION
  Report Type: Spontaneous
  Country: RO (occurrence: RO)
  Receive Date: 20191005
  Receipt Date: 20200107
  Transmission Date: 20200409
  Serious: Yes (Death, Hospitalization, Other)
  Sender: FDA-Public Use
  Company Number: RO-SUN PHARMACEUTICAL INDUSTRIES LTD-2019RR-222680

PATIENT
  Age: 41 Year
  Sex: Female

DRUGS (3)
  1. LAPATINIB [Suspect]
     Active Substance: LAPATINIB
     Indication: METASTASES TO CENTRAL NERVOUS SYSTEM
     Dosage: 1250 MILLIGRAM, DAILY
     Route: 065
     Dates: start: 201602, end: 201802
  2. CAPECITABINE. [Suspect]
     Active Substance: CAPECITABINE
     Indication: METASTASES TO CENTRAL NERVOUS SYSTEM
     Dosage: 2000 MILLIGRAM/SQ. METER, DAILY
     Route: 065
     Dates: start: 201602
  3. TRASTUZUMAB. [Suspect]
     Active Substance: TRASTUZUMAB
     Indication: METASTASES TO CENTRAL NERVOUS SYSTEM
     Dosage: 3.6 MILLIGRAM/KILOGRAM, 1 DOSE/3 WEEKS
     Route: 065
     Dates: start: 201802

REACTIONS (2)
  - Disease progression [Fatal]
  - General physical health deterioration [Fatal]
